FAERS Safety Report 7765587-X (Version None)
Quarter: 2011Q3

REPORT INFORMATION
  Report Type: 
  Country: None (occurrence: None)
  Receive Date: 20110921
  Receipt Date: 20110912
  Transmission Date: 20111222
  Serious: Yes (Other)
  Sender: FDA-Public Use
  Company Number: PHHY2011JP82218

PATIENT

DRUGS (1)
  1. GLEEVEC [Suspect]
     Dosage: UNK UKN, UNK
     Route: 048

REACTIONS (2)
  - CEREBRAL INFARCTION [None]
  - DYSPHAGIA [None]
